FAERS Safety Report 7665674-0 (Version None)
Quarter: 2011Q3

REPORT INFORMATION
  Report Type: 
  Country: None (occurrence: None)
  Receive Date: 20110806
  Receipt Date: 20110414
  Transmission Date: 20111222
  Serious: No
  Sender: FDA-Public Use
  Company Number: US-ABBOTT-11P-163-0718980-00

PATIENT
  Sex: Male

DRUGS (4)
  1. UNKNOWN BP MEDICATION [Concomitant]
     Indication: BLOOD PRESSURE
  2. ZOCOR [Concomitant]
     Indication: PRODUCT USED FOR UNKNOWN INDICATION
  3. ASPIRIN [Concomitant]
     Indication: PRODUCT USED FOR UNKNOWN INDICATION
  4. NIASPAN [Suspect]
     Indication: BLOOD CHOLESTEROL INCREASED
     Dates: start: 20060101

REACTIONS (3)
  - FLUSHING [None]
  - PRURITUS [None]
  - FEELING HOT [None]
